FAERS Safety Report 17754064 (Version 1)
Quarter: 2020Q2

REPORT INFORMATION
  Report Type: Spontaneous
  Country: ES (occurrence: ES)
  Receive Date: 20200506
  Receipt Date: 20200506
  Transmission Date: 20200714
  Serious: Yes (Hospitalization)
  Sender: FDA-Public Use
  Company Number: NVSC2020ES122550

PATIENT
  Age: 73 Year
  Sex: Female

DRUGS (2)
  1. MEKINIST [Suspect]
     Active Substance: TRAMETINIB DIMETHYL SULFOXIDE
     Indication: MALIGNANT MELANOMA
     Dosage: 1.5 MG, QD (0.5 MG COMPRIMIDOS RECUBIERTOS CON PELICULA 30 COMPRIMIDOS )
     Route: 048
     Dates: start: 20190405, end: 20190901
  2. TAFINLAR [Suspect]
     Active Substance: DABRAFENIB MESYLATE
     Indication: MALIGNANT MELANOMA
     Dosage: 200 MG, QD (50 MG CAPSULAS DURAS 28 CAPSULAS)
     Route: 048
     Dates: start: 20190405, end: 20190901

REACTIONS (1)
  - Neuropathy peripheral [Recovering/Resolving]

NARRATIVE: CASE EVENT DATE: 20190821
